FAERS Safety Report 24862551 (Version 1)
Quarter: 2025Q1

REPORT INFORMATION
  Report Type: Other
  Country: IL (occurrence: IL)
  Receive Date: 20250120
  Receipt Date: 20250120
  Transmission Date: 20250409
  Serious: Yes (Hospitalization, Other)
  Sender: DEXCEL
  Company Number: IL-DEXPHARM-2025-0517

PATIENT
  Age: 34 Year
  Sex: Male

DRUGS (3)
  1. OFLOXACIN [Suspect]
     Active Substance: OFLOXACIN
     Dosage: 400 MG BID
     Route: 050
  2. DEXAMETHASONE [Suspect]
     Active Substance: DEXAMETHASONE
  3. LEVETIRACETAM [Suspect]
     Active Substance: LEVETIRACETAM

REACTIONS (1)
  - Seizure [Unknown]
